FAERS Safety Report 23458721 (Version 2)
Quarter: 2024Q1

REPORT INFORMATION
  Report Type: Spontaneous
  Country: DE (occurrence: DE)
  Receive Date: 20240130
  Receipt Date: 20240217
  Transmission Date: 20240410
  Serious: Yes (Hospitalization)
  Sender: FDA-Public Use
  Company Number: DE-ABBVIE-5605715

PATIENT
  Age: 58 Year
  Sex: Male
  Weight: 96 kg

DRUGS (9)
  1. RINVOQ [Suspect]
     Active Substance: UPADACITINIB
     Indication: Colitis ulcerative
     Route: 048
     Dates: start: 20231003, end: 20231209
  2. METOPROLOL [Concomitant]
     Active Substance: METOPROLOL
     Indication: Product used for unknown indication
     Dosage: START DATE TEXT: BEFORE 2022
     Route: 048
  3. AMLODIPINE [Concomitant]
     Active Substance: AMLODIPINE BESYLATE
     Indication: Product used for unknown indication
     Dosage: START DATE TEXT: BEFORE 2022
  4. Atorimib [Concomitant]
     Indication: Product used for unknown indication
     Dosage: 10/40MG?START DATE TEXT: BEFORE 2022
     Route: 048
  5. ALLOPURINOL [Concomitant]
     Active Substance: ALLOPURINOL
     Indication: Product used for unknown indication
     Dosage: START DATE TEXT: BEFORE 2022
     Route: 048
  6. ASPIRIN [Concomitant]
     Active Substance: ASPIRIN
     Indication: Product used for unknown indication
     Dosage: START DATE TEXT: BEFORE 2022
     Route: 048
  7. RAMIPRIL [Concomitant]
     Active Substance: RAMIPRIL
     Indication: Product used for unknown indication
     Dosage: START DATE TEXT: BEFORE 2022
  8. TIOTROPIUM BROMIDE [Concomitant]
     Active Substance: TIOTROPIUM BROMIDE
     Indication: Product used for unknown indication
     Dosage: BRALTUS DA?START DATE TEXT: BEFORE 2022
  9. Salofalk [Concomitant]
     Indication: Product used for unknown indication
     Dosage: START DATE TEXT: BEFORE 2022

REACTIONS (2)
  - Epistaxis [Recovered/Resolved]
  - Acne [Unknown]

NARRATIVE: CASE EVENT DATE: 20231201
